FAERS Safety Report 15887664 (Version 2)
Quarter: 2019Q3

REPORT INFORMATION
  Report Type: Spontaneous
  Country: FR (occurrence: FR)
  Receive Date: 20190130
  Receipt Date: 20190801
  Transmission Date: 20191004
  Serious: Yes (Hospitalization)
  Sender: FDA-Public Use
  Company Number: FR-SA-2019SA021887

PATIENT
  Age: 34 Year
  Sex: Female
  Weight: 70 kg

DRUGS (1)
  1. AUBAGIO [Suspect]
     Active Substance: TERIFLUNOMIDE
     Indication: MULTIPLE SCLEROSIS
     Dosage: 1 DF
     Route: 048

REACTIONS (1)
  - Erythema nodosum [Recovering/Resolving]

NARRATIVE: CASE EVENT DATE: 20190107
